FAERS Safety Report 9949613 (Version 1)
Quarter: 2014Q1

REPORT INFORMATION
  Report Type: Report from Study
  Country: US (occurrence: US)
  Receive Date: 20140304
  Receipt Date: 20140304
  Transmission Date: 20141002
  Serious: No
  Sender: FDA-Public Use
  Company Number: US-ABBVIE-13P-163-1065025-00

PATIENT
  Age: 53 Year
  Sex: Female
  Weight: 116.22 kg

DRUGS (7)
  1. HUMIRA [Suspect]
     Indication: PSORIASIS
     Dates: end: 2012
  2. HUMIRA [Suspect]
     Indication: PSORIATIC ARTHROPATHY
  3. ADVAIR [Concomitant]
     Indication: ASTHMA
  4. SINGULAIR [Concomitant]
     Indication: ASTHMA
  5. LOSARTAN [Concomitant]
     Indication: HYPERTENSION
  6. VITAMINS [Concomitant]
     Indication: VITAMIN SUPPLEMENTATION
  7. ZITHROMAX [Concomitant]
     Indication: PRODUCT USED FOR UNKNOWN INDICATION

REACTIONS (2)
  - Psoriasis [Not Recovered/Not Resolved]
  - Psoriatic arthropathy [Not Recovered/Not Resolved]
